FAERS Safety Report 6959664-0 (Version None)
Quarter: 2010Q3

REPORT INFORMATION
  Report Type: 
  Country: None (occurrence: None)
  Receive Date: 20100823
  Receipt Date: 20100721
  Transmission Date: 20110219
  Serious: No
  Sender: FDA-Public Use
  Company Number: 016047

PATIENT
  Sex: Male

DRUGS (2)
  1. CIMZIA [Suspect]
     Dosage: (SUBCUTANEOUS)
     Route: 058
     Dates: start: 20091015
  2. PREDNISONE [Concomitant]

REACTIONS (2)
  - MIDDLE INSOMNIA [None]
  - MUSCULAR WEAKNESS [None]
